FAERS Safety Report 25051667 (Version 3)
Quarter: 2025Q2

REPORT INFORMATION
  Report Type: Spontaneous
  Country: US (occurrence: US)
  Receive Date: 20250307
  Receipt Date: 20250404
  Transmission Date: 20250716
  Serious: Yes (Life-Threatening, Other)
  Sender: MYLAN
  Company Number: US-MYLANLABS-2025M1017706

PATIENT
  Sex: Male
  Weight: 17.5 kg

DRUGS (1)
  1. EPINEPHRINE [Suspect]
     Active Substance: EPINEPHRINE
     Indication: Anaphylactic reaction

REACTIONS (3)
  - Device failure [Unknown]
  - Needle issue [Unknown]
  - Medical device entrapment [Unknown]

NARRATIVE: CASE EVENT DATE: 20250203
